FAERS Safety Report 24729875 (Version 3)
Quarter: 2025Q1

REPORT INFORMATION
  Report Type: Spontaneous
  Country: US (occurrence: US)
  Receive Date: 20241213
  Receipt Date: 20250321
  Transmission Date: 20250409
  Serious: No
  Sender: BRISTOL-MYERS SQUIBB COMPANY
  Company Number: US-BRISTOL-MYERS SQUIBB COMPANY-2024-193553

PATIENT
  Age: 72 Year
  Sex: Female

DRUGS (1)
  1. SPRYCEL [Suspect]
     Active Substance: DASATINIB
     Indication: Product used for unknown indication
     Route: 048

REACTIONS (6)
  - Periorbital swelling [Unknown]
  - Tooth discolouration [Unknown]
  - Constipation [Unknown]
  - Swelling face [Unknown]
  - Pain in extremity [Unknown]
  - Gait disturbance [Unknown]
